FAERS Safety Report 6771622-8 (Version None)
Quarter: 2010Q2

REPORT INFORMATION
  Report Type: 
  Country: None (occurrence: None)
  Receive Date: 20100616
  Receipt Date: 20100604
  Transmission Date: 20101027
  Serious: Yes (Other)
  Sender: FDA-Public Use
  Company Number: PHHY2010US22587

PATIENT
  Sex: Female

DRUGS (2)
  1. FEMARA [Suspect]
  2. ZOMETA [Suspect]

REACTIONS (1)
  - FOOT FRACTURE [None]
